FAERS Safety Report 5465810-0 (Version None)
Quarter: 2007Q3

REPORT INFORMATION
  Report Type: 
  Country: None (occurrence: None)
  Receive Date: 20070924
  Receipt Date: 20070921
  Transmission Date: 20080115
  Serious: Yes (Death, Other)
  Sender: FDA-Public Use
  Company Number: AT-BRISTOL-MYERS SQUIBB COMPANY-13911094

PATIENT
  Age: 54 Year
  Sex: Male

DRUGS (2)
  1. CYCLOPHOSPHAMIDE [Suspect]
  2. TRANSFUSION [Suspect]

REACTIONS (2)
  - GRAFT VERSUS HOST DISEASE [None]
  - SEPTIC SHOCK [None]
